FAERS Safety Report 22164815 (Version 5)
Quarter: 2023Q2

REPORT INFORMATION
  Report Type: Report from Study
  Country: EG (occurrence: EG)
  Receive Date: 20230403
  Receipt Date: 20230508
  Transmission Date: 20230722
  Serious: Yes (Other)
  Sender: FDA-Public Use
  Company Number: EG-002147023-NVSC2023EG073968

PATIENT
  Sex: Female

DRUGS (12)
  1. GILENYA [Suspect]
     Active Substance: FINGOLIMOD HYDROCHLORIDE
     Indication: Multiple sclerosis
     Dosage: 0.5 MG, QD (STOPPED: A WEEK AGO (COUNT FROM 26 MAR 2023))
     Route: 048
     Dates: start: 2020, end: 20230326
  2. GILENYA [Suspect]
     Active Substance: FINGOLIMOD HYDROCHLORIDE
     Dosage: 0.5 MG, QD (STOPPED ONE MONTH AGO PER PATIENT^S DECISION (COUNT FROM 16 APR 2023) AS PER PATIENT^S W
     Route: 048
     Dates: start: 20230404, end: 20230416
  3. GILENYA [Suspect]
     Active Substance: FINGOLIMOD HYDROCHLORIDE
     Dosage: 0.5 MG, QD (STARED: 2 WEEKS AGO (COUNT FROM 29 APRIL 2023)
     Route: 048
     Dates: start: 20230429
  4. OMEGA 3 [Concomitant]
     Active Substance: CAPSAICIN
     Indication: Supplementation therapy
     Dosage: 1 DOSAGE FORM, ONE CAP AFTER DINNER, IN AN INTERMITTENT MANNER, AS SHE MAY ADMINISTER IT FOR 3 MONTH
     Route: 065
     Dates: start: 2020
  5. VITAMIN B12 [Concomitant]
     Active Substance: CYANOCOBALAMIN
     Indication: Supplementation therapy
     Dosage: 1 DOSAGE FORM, AFTER BREAKFAST (ORAL OR INJECTION, DEPENDS ON THE AVAILABILITY)
     Route: 048
     Dates: start: 2020
  6. BIOTIN [Concomitant]
     Active Substance: BIOTIN
     Indication: Supplementation therapy
     Dosage: 100000 OT, TID
     Route: 065
     Dates: start: 202301
  7. LEVOCARNITINE [Concomitant]
     Active Substance: LEVOCARNITINE
     Indication: Asthenia
     Dosage: BID (HIGH DOSE)
     Route: 065
     Dates: start: 2020
  8. VITAMIN C [Concomitant]
     Active Substance: ASCORBIC ACID
     Indication: Supplementation therapy
     Dosage: UNK (WHEN SHE CATCHES A FLU, AS ON JAN AND FEB 2023)
     Route: 065
  9. VITAMIN D [Concomitant]
     Active Substance: VITAMIN D NOS
     Indication: Supplementation therapy
     Dosage: 1 DOSAGE FORM, QD
     Route: 065
     Dates: start: 2020
  10. CALCIUM [Concomitant]
     Active Substance: CALCIUM
     Indication: Supplementation therapy
     Dosage: 1 DOSAGE FORM, QD
     Route: 065
     Dates: start: 2020
  11. PROLOL [Concomitant]
     Indication: Heart rate irregular
     Dosage: FOR 1 MONTH
     Route: 065
     Dates: start: 20230410
  12. PROLOL [Concomitant]
     Indication: Prophylaxis

REACTIONS (24)
  - Skin mass [Not Recovered/Not Resolved]
  - Pain [Not Recovered/Not Resolved]
  - Burning sensation [Not Recovered/Not Resolved]
  - White blood cell count decreased [Unknown]
  - Influenza [Recovered/Resolved]
  - Oropharyngeal pain [Recovered/Resolved]
  - Multiple sclerosis [Not Recovered/Not Resolved]
  - Cardiac disorder [Recovered/Resolved]
  - Tachycardia [Recovered/Resolved]
  - Nervousness [Not Recovered/Not Resolved]
  - Blood pressure decreased [Not Recovered/Not Resolved]
  - Fatigue [Not Recovered/Not Resolved]
  - Insomnia [Not Recovered/Not Resolved]
  - Multiple sclerosis relapse [Not Recovered/Not Resolved]
  - Memory impairment [Unknown]
  - Limb discomfort [Not Recovered/Not Resolved]
  - Inflammation [Not Recovered/Not Resolved]
  - Dizziness [Not Recovered/Not Resolved]
  - Asthenia [Not Recovered/Not Resolved]
  - Lymphocyte count abnormal [Unknown]
  - Hypoaesthesia [Unknown]
  - Mean cell volume decreased [Unknown]
  - Red cell distribution width increased [Unknown]
  - Human chorionic gonadotropin increased [Unknown]

NARRATIVE: CASE EVENT DATE: 20200101
